FAERS Safety Report 16747829 (Version 1)
Quarter: 2019Q3

REPORT INFORMATION
  Report Type: Report from Study
  Country: CA (occurrence: CA)
  Receive Date: 20190827
  Receipt Date: 20190827
  Transmission Date: 20191005
  Serious: Yes (Death)
  Sender: FDA-Public Use
  Company Number: PHHY2019CA179141

PATIENT
  Age: 28 Year
  Sex: Male

DRUGS (1)
  1. SANDOSTATIN LAR DEPOT [Suspect]
     Active Substance: OCTREOTIDE ACETATE
     Indication: CARCINOID TUMOUR
     Dosage: 30 MG, Q4W (EVERY 4 WEEKS)
     Route: 030
     Dates: start: 20190621, end: 20190731

REACTIONS (4)
  - Hypophagia [Fatal]
  - Oedema [Fatal]
  - Malaise [Unknown]
  - Dyspnoea [Fatal]

NARRATIVE: CASE EVENT DATE: 20190820
